FAERS Safety Report 25528339 (Version 1)
Quarter: 2025Q3

REPORT INFORMATION
  Report Type: Spontaneous
  Country: US (occurrence: None)
  Receive Date: 20250708
  Receipt Date: 20250708
  Transmission Date: 20251020
  Serious: No
  Sender: MAIA PHARMACEUTICALS
  Company Number: US-MAIA Pharmaceuticals, Inc.-MAI202504-000044

PATIENT
  Age: 77 Year
  Sex: Male
  Weight: 78.5 kg

DRUGS (5)
  1. BIVALIRUDIN RTU [Suspect]
     Active Substance: BIVALIRUDIN
     Indication: Percutaneous coronary intervention
     Route: 040
     Dates: start: 20250317
  2. BIVALIRUDIN RTU [Suspect]
     Active Substance: BIVALIRUDIN
     Route: 041
     Dates: start: 20250317
  3. BIVALIRUDIN RTU [Suspect]
     Active Substance: BIVALIRUDIN
     Route: 040
     Dates: start: 20250317
  4. BIVALIRUDIN RTU [Suspect]
     Active Substance: BIVALIRUDIN
     Route: 041
     Dates: start: 20250317
  5. HEPARIN [Concomitant]
     Active Substance: HEPARIN SODIUM
     Indication: Percutaneous coronary intervention
     Route: 040
     Dates: start: 202503

REACTIONS (1)
  - Therapeutic product effect incomplete [Unknown]

NARRATIVE: CASE EVENT DATE: 20250317
